FAERS Safety Report 13636196 (Version 1)
Quarter: 2017Q2

REPORT INFORMATION
  Report Type: Spontaneous
  Country: US (occurrence: US)
  Receive Date: 20170531
  Receipt Date: 20170531
  Transmission Date: 20170830
  Serious: No
  Sender: FDA-Public Use
  Company Number: US-ASTELLAS-1794213

PATIENT
  Sex: Female

DRUGS (2)
  1. TARCEVA [Suspect]
     Active Substance: ERLOTINIB HYDROCHLORIDE
     Indication: LUNG NEOPLASM MALIGNANT
     Route: 048
     Dates: start: 20160619
  2. MINOCYCLINE [Concomitant]
     Active Substance: MINOCYCLINE\MINOCYCLINE HYDROCHLORIDE

REACTIONS (8)
  - Decreased appetite [Unknown]
  - Oropharyngeal pain [Unknown]
  - Dysgeusia [Unknown]
  - Skin ulcer [Unknown]
  - Stomatitis [Unknown]
  - Dry mouth [Unknown]
  - Diarrhoea [Unknown]
  - Nausea [Unknown]
